FAERS Safety Report 23761347 (Version 1)
Quarter: 2024Q2

REPORT INFORMATION
  Report Type: Spontaneous
  Country: IE (occurrence: IE)
  Receive Date: 20240419
  Receipt Date: 20240419
  Transmission Date: 20240716
  Serious: Yes (Hospitalization, Other)
  Sender: FDA-Public Use
  Company Number: IE-ABBVIE-22K-229-4355388-00

PATIENT
  Age: 77 Year
  Sex: Male

DRUGS (55)
  1. OLANZAPINE [Suspect]
     Active Substance: OLANZAPINE
     Indication: Psychotic behaviour
     Dosage: 5 MILLIGRAM, ONCE A DAY
     Route: 065
  2. OLANZAPINE [Suspect]
     Active Substance: OLANZAPINE
     Dosage: 7.5 MILLIGRAM, ONCE A DAY
     Route: 065
  3. AMANTADINE [Suspect]
     Active Substance: AMANTADINE
     Indication: Product used for unknown indication
     Dosage: UNK
     Route: 065
     Dates: start: 2023, end: 2023
  4. BOTOX [Suspect]
     Active Substance: ONABOTULINUMTOXINA
     Indication: Dystonia
     Dosage: UNK
     Route: 065
  5. CARBIDOPA\LEVODOPA [Suspect]
     Active Substance: CARBIDOPA\LEVODOPA
     Indication: Parkinson^s disease
     Dosage: UNK,1 CASSETTE CONTINUOUS, LAST ADMIN: 2022.FREQUENCY TEXT: CONTINUOUS
     Route: 065
     Dates: start: 20220323
  6. CARBIDOPA\LEVODOPA [Suspect]
     Active Substance: CARBIDOPA\LEVODOPA
     Dosage: UNK, INCREASED CONTINUOUS DOSE TO 2.2ML/PH LAST ADMIN DATE :2024
     Route: 065
     Dates: start: 202401
  7. CARBIDOPA\LEVODOPA [Suspect]
     Active Substance: CARBIDOPA\LEVODOPA
     Dosage: UNK, CONTINUOUS NIGHT RATE 1.5ML/HR
     Route: 065
     Dates: end: 202303
  8. CARBIDOPA\LEVODOPA [Suspect]
     Active Substance: CARBIDOPA\LEVODOPA
     Dosage: UNK,EXTRA DOSE 2.0ML
     Route: 065
     Dates: start: 202311, end: 202311
  9. CARBIDOPA\LEVODOPA [Suspect]
     Active Substance: CARBIDOPA\LEVODOPA
     Dosage: UNK,CONTINUOUS DOSE 3.5ML/HR
     Route: 065
     Dates: end: 20220511
  10. CARBIDOPA\LEVODOPA [Suspect]
     Active Substance: CARBIDOPA\LEVODOPA
     Dosage: UNK,CONTINUOUS RATE 2.9ML/HRFREQUENCY TEXT: CONTINUOUS
     Route: 065
     Dates: start: 2022, end: 202208
  11. CARBIDOPA\LEVODOPA [Suspect]
     Active Substance: CARBIDOPA\LEVODOPA
     Dosage: UNK
     Route: 065
     Dates: start: 20240327
  12. CARBIDOPA\LEVODOPA [Suspect]
     Active Substance: CARBIDOPA\LEVODOPA
     Dosage: UNK,CONTINUOUS DOSE 2.0ML; MORNING DOSE 3 ML/LAST ADMIN DATE: JAN 2024
     Route: 065
     Dates: start: 20240118
  13. CARBIDOPA\LEVODOPA [Suspect]
     Active Substance: CARBIDOPA\LEVODOPA
     Dosage: UNK,MORNING DOSE INCREASED BY 6ML
     Route: 065
     Dates: start: 202401, end: 202401
  14. CARBIDOPA\LEVODOPA [Suspect]
     Active Substance: CARBIDOPA\LEVODOPA
     Dosage: UNK,INCREASED CONTINUOUS DOSE TO 2.2ML/PH/LAST ADMIN DATE: 2024
     Route: 065
     Dates: start: 202401
  15. CARBIDOPA\LEVODOPA [Suspect]
     Active Substance: CARBIDOPA\LEVODOPA
     Dosage: UNK,CONTINUOUS RATE 3.1ML/HR
     Route: 065
     Dates: start: 2023, end: 2023
  16. CARBIDOPA\LEVODOPA [Suspect]
     Active Substance: CARBIDOPA\LEVODOPA
     Dosage: UNK,DAY PUMP EXTRA DOSE 1.7ML; CONTINUOUS DOSE 2.9ML/HR; NIGHT PUMP CONTINUOUS DOSE 2.1ML/HR
     Route: 065
     Dates: start: 2023, end: 2023
  17. CARBIDOPA\LEVODOPA [Suspect]
     Active Substance: CARBIDOPA\LEVODOPA
     Dosage: UNK,CONTINUOUS 1.3ML/PH; EXTRA DOSE 0.8ML;  MORNING DOSE OF 6ML, FIRST ADMIN DATE: MARCH 2023, LAST
     Route: 065
     Dates: start: 202303, end: 202303
  18. CARBIDOPA\LEVODOPA [Suspect]
     Active Substance: CARBIDOPA\LEVODOPA
     Dosage: UNK,CONTINUOUS DOSE DAY PUMP 2.8ML/PH ; CONTINUOUS NIGHT RATE 1.8M/PH, END DATE 2023.
     Route: 065
     Dates: start: 202303
  19. CARBIDOPA\LEVODOPA [Suspect]
     Active Substance: CARBIDOPA\LEVODOPA
     Dosage: UNK,EXTRA DOSE 1.6ML
     Route: 065
     Dates: start: 2023, end: 202311
  20. CARBIDOPA\LEVODOPA [Suspect]
     Active Substance: CARBIDOPA\LEVODOPA
     Dosage: UNK, MORNING DOSE 3ML ADDED
     Route: 065
     Dates: start: 2023, end: 2023
  21. CARBIDOPA\LEVODOPA [Suspect]
     Active Substance: CARBIDOPA\LEVODOPA
     Dosage: UNK,CONTINUOUS 1.3ML/PH; EXTRA DOSE 0.8ML;  MORNING DOSE OF 6ML
     Route: 065
  22. CARBIDOPA\LEVODOPA [Suspect]
     Active Substance: CARBIDOPA\LEVODOPA
     Dosage: UNK,DECREASED CONTINUOUS RATE BY 0.2ML/HR THERAPY END DATE 2023
     Route: 065
     Dates: start: 202311
  23. CARBIDOPA\LEVODOPA [Suspect]
     Active Substance: CARBIDOPA\LEVODOPA
     Dosage: UNK,CONTINUOUS DOSE 3.7ML/HR
     Route: 065
     Dates: start: 2022, end: 2022
  24. CARBIDOPA\LEVODOPA [Suspect]
     Active Substance: CARBIDOPA\LEVODOPA
     Dosage: UNK,CONTINUOUS DOSE 3.7ML/HR
     Route: 065
  25. CARBIDOPA\LEVODOPA [Suspect]
     Active Substance: CARBIDOPA\LEVODOPA
     Dosage: UNK,CONTINUOUS DOSE 3.5ML/HR
     Route: 065
  26. CARBIDOPA\LEVODOPA [Suspect]
     Active Substance: CARBIDOPA\LEVODOPA
     Dosage: UNK, EXTRA DOSE 1.5ML
     Route: 065
     Dates: start: 2023, end: 2023
  27. CARBIDOPA\LEVODOPA [Suspect]
     Active Substance: CARBIDOPA\LEVODOPA
     Dosage: UNK,CONTINUOUS DOSE 3.5ML/HR
     Route: 065
     Dates: start: 202205, end: 20220511
  28. CARBIDOPA\LEVODOPA [Suspect]
     Active Substance: CARBIDOPA\LEVODOPA
     Dosage: UNK, CONTINUOUS DOSE 2.0ML. NIGHT EXTRA DOSE INCREASED TO 0.9ML, LAST ADMIN DATE: 2023FREQUENCY TEXT
     Route: 065
     Dates: start: 2023, end: 2023
  29. CARBIDOPA\LEVODOPA [Suspect]
     Active Substance: CARBIDOPA\LEVODOPA
     Dosage: UNK,CONTINUOUS RATE 3.2ML/HR. EXTRA DOSE 2.0ML.
     Route: 065
     Dates: start: 202205, end: 20220621
  30. CARBIDOPA\LEVODOPA [Suspect]
     Active Substance: CARBIDOPA\LEVODOPA
     Dosage: UNK,CONTINUOUS RATE: 2.7 ML/HR, FREQUENCY TEXT: CONTINUOUS
     Route: 065
     Dates: start: 202208, end: 202208
  31. CARBIDOPA\LEVODOPA [Suspect]
     Active Substance: CARBIDOPA\LEVODOPA
     Dosage: UNK, 1 CASSETTE; CONTINUOUS DOSE 1.7ML/PH,
     Route: 065
     Dates: start: 202401, end: 20240118
  32. CARBIDOPA\LEVODOPA [Suspect]
     Active Substance: CARBIDOPA\LEVODOPA
     Dosage: UNK,CONTINUOUS NIGHT RATE 1.5ML/HR
     Route: 065
     Dates: start: 202303, end: 202303
  33. CARBIDOPA\LEVODOPA [Suspect]
     Active Substance: CARBIDOPA\LEVODOPA
     Dosage: UNK, CONTINUOUS DOSE 3.3ML/HRLAST ADMIN DATE: MAY 2022
     Route: 065
     Dates: start: 20220511
  34. CARBIDOPA\LEVODOPA [Suspect]
     Active Substance: CARBIDOPA\LEVODOPA
     Dosage: UNK, CONTINUOUS DOSE DECREASED TO 3.0ML/PH. EXTRA DOSE DECREASED TO 1.6MLCONTINUOUS, END DATE: 2022
     Route: 065
     Dates: start: 20220621
  35. QUETIAPINE [Concomitant]
     Active Substance: QUETIAPINE
     Indication: Product used for unknown indication
     Dosage: UNK,DOSE INCREASED
     Route: 065
     Dates: start: 202312
  36. QUETIAPINE [Concomitant]
     Active Substance: QUETIAPINE
     Dosage: UNK
     Route: 065
     Dates: start: 202312, end: 202312
  37. SINEMET CR [Concomitant]
     Active Substance: CARBIDOPA\LEVODOPA
     Indication: Product used for unknown indication
     Dosage: 110 MILLIGRAM, ONCE A DAY,50/200 AT 11PM, 250MG
     Route: 065
  38. SINEMET CR [Concomitant]
     Active Substance: CARBIDOPA\LEVODOPA
     Dosage: 100 MILLIGRAM
     Route: 065
  39. BUMETANIDE [Concomitant]
     Active Substance: BUMETANIDE
     Indication: Product used for unknown indication
     Dosage: 1 MILLIGRAM, ONCE A DAY
     Route: 065
  40. STALEVO [Concomitant]
     Active Substance: CARBIDOPA\ENTACAPONE\LEVODOPA
     Indication: Product used for unknown indication
     Dosage: UNK, 125/31.25/200MG AT11AM/2PM/5PM/8PM; 125 MG
     Route: 065
  41. STALEVO [Concomitant]
     Active Substance: CARBIDOPA\ENTACAPONE\LEVODOPA
     Dosage: UNK, AT 8AM - 150/37.5/200MG; 150MG
     Route: 065
  42. PANTOPRAZOLE [Concomitant]
     Active Substance: PANTOPRAZOLE
     Indication: Product used for unknown indication
     Dosage: 40 MILLIGRAM, ONCE A DAY
     Route: 065
  43. RIVOTRIL [Concomitant]
     Active Substance: CLONAZEPAM
     Indication: Product used for unknown indication
     Dosage: 0.5 MILLIGRAM
     Route: 065
  44. RIVASTIGMINE [Concomitant]
     Active Substance: RIVASTIGMINE
     Indication: Product used for unknown indication
     Dosage: UNK,9.5MGEVERY 24 HR; AS PER PRESCRIPTION
     Route: 065
  45. SINEMET [Concomitant]
     Active Substance: CARBIDOPA\LEVODOPA
     Indication: Product used for unknown indication
     Dosage: 110 MILLIGRAM, ONCE A DAY
     Route: 065
  46. SINEMET [Concomitant]
     Active Substance: CARBIDOPA\LEVODOPA
     Dosage: UNK
     Route: 065
  47. OPICAPONE [Concomitant]
     Active Substance: OPICAPONE
     Indication: Product used for unknown indication
     Dosage: 50 MILLIGRAM, ONCE A DAY
     Route: 065
     Dates: start: 2022
  48. OPICAPONE [Concomitant]
     Active Substance: OPICAPONE
     Dosage: UNK
     Route: 065
  49. ENTACAPONE [Concomitant]
     Active Substance: ENTACAPONE
     Indication: Product used for unknown indication
     Dosage: 200 MILLIGRAM, ONCE A DAY, AT 11PM; 200 MG
     Route: 065
  50. ESCITALOPRAM [Concomitant]
     Active Substance: ESCITALOPRAM OXALATE
     Indication: Product used for unknown indication
     Dosage: 10 MILLIGRAM, ONCE A DAY
     Route: 065
  51. ESCITALOPRAM [Concomitant]
     Active Substance: ESCITALOPRAM OXALATE
     Dosage: 15 MILLIGRAM, ONCE A DAY
     Route: 065
  52. MOVICOL [Concomitant]
     Active Substance: POLYETHYLENE GLYCOL 3350\POTASSIUM CHLORIDE\SODIUM BICARBONATE\SODIUM CHLORIDE
     Indication: Product used for unknown indication
     Dosage: 1 DOSAGE FORM
     Route: 065
  53. BENSERAZIDE HYDROCHLORIDE\LEVODOPA [Concomitant]
     Active Substance: BENSERAZIDE HYDROCHLORIDE\LEVODOPA
     Indication: Product used for unknown indication
     Dosage: 100 MILLIGRAM
     Route: 048
  54. BENSERAZIDE HYDROCHLORIDE\LEVODOPA [Concomitant]
     Active Substance: BENSERAZIDE HYDROCHLORIDE\LEVODOPA
     Dosage: 100 MILLIGRAM, 125MG AT 9AM/12PM/15PM
     Route: 048
  55. AMOXICILLIN [Concomitant]
     Active Substance: AMOXICILLIN
     Indication: Product used for unknown indication
     Dosage: UNK,875.125 MG
     Route: 065

REACTIONS (36)
  - Parkinson^s disease [Recovering/Resolving]
  - Hallucination [Recovered/Resolved]
  - Psychotic behaviour [Recovered/Resolved]
  - Dystonia [Not Recovered/Not Resolved]
  - Delirium [Not Recovered/Not Resolved]
  - Akinesia [Not Recovered/Not Resolved]
  - Loss of personal independence in daily activities [Not Recovered/Not Resolved]
  - Posture abnormal [Not Recovered/Not Resolved]
  - Aggression [Not Recovered/Not Resolved]
  - Hyperkinesia [Not Recovered/Not Resolved]
  - General symptom [Not Recovered/Not Resolved]
  - Paraesthesia [Not Recovered/Not Resolved]
  - Abnormal behaviour [Not Recovered/Not Resolved]
  - Anxiety [Not Recovered/Not Resolved]
  - Initial insomnia [Not Recovered/Not Resolved]
  - Hyperhidrosis [Not Recovered/Not Resolved]
  - Abdominal discomfort [Not Recovered/Not Resolved]
  - Condition aggravated [Not Recovered/Not Resolved]
  - On and off phenomenon [Not Recovered/Not Resolved]
  - Unevaluable event [Not Recovered/Not Resolved]
  - Tension headache [Not Recovered/Not Resolved]
  - Stoma site pain [Not Recovered/Not Resolved]
  - Confusional state [Not Recovered/Not Resolved]
  - Muscle spasms [Not Recovered/Not Resolved]
  - Agitation [Not Recovered/Not Resolved]
  - Weight increased [Unknown]
  - Sedation [Recovering/Resolving]
  - Movement disorder [Recovering/Resolving]
  - Dyskinesia [Recovered/Resolved]
  - Paranoia [Recovered/Resolved]
  - Gait disturbance [Recovered/Resolved]
  - Mobility decreased [Recovered/Resolved]
  - Fall [Recovered/Resolved]
  - Therapeutic product effect incomplete [Not Recovered/Not Resolved]
  - Drug ineffective [Recovering/Resolving]
  - Device alarm issue [Recovered/Resolved]

NARRATIVE: CASE EVENT DATE: 20220101
